FAERS Safety Report 18230464 (Version 1)
Quarter: 2020Q3

REPORT INFORMATION
  Report Type: Spontaneous
  Country: FR (occurrence: FR)
  Receive Date: 20200904
  Receipt Date: 20200904
  Transmission Date: 20201103
  Serious: Yes (Hospitalization)
  Sender: FDA-Public Use
  Company Number: FR-TEVA-2020-FR-1820830

PATIENT
  Age: 75 Year
  Sex: Male
  Weight: 66 kg

DRUGS (11)
  1. ELIQUIS [Suspect]
     Active Substance: APIXABAN
     Indication: ATRIAL FIBRILLATION
     Dosage: 2 DOSAGE FORMS
     Route: 048
     Dates: start: 201810, end: 20190623
  2. MIRTAZAPINE. [Suspect]
     Active Substance: MIRTAZAPINE
     Indication: DEPRESSION
     Dosage: 30MG
     Route: 048
     Dates: start: 20190426
  3. PANTOPRAZOLE [Concomitant]
     Active Substance: PANTOPRAZOLE
  4. KARDEGIC [Suspect]
     Active Substance: ASPIRIN DL-LYSINE
     Indication: ATRIAL FIBRILLATION
     Dosage: 1 DOSAGE FORMS
     Route: 048
     Dates: start: 201808
  5. ATORVASTATINE [Concomitant]
     Active Substance: ATORVASTATIN
  6. SPIRONOLACTONE. [Concomitant]
     Active Substance: SPIRONOLACTONE
  7. OXAZEPAM. [Concomitant]
     Active Substance: OXAZEPAM
  8. FUROSEMIDE. [Concomitant]
     Active Substance: FUROSEMIDE
  9. CANDESARTAN CILEXETIL. [Concomitant]
     Active Substance: CANDESARTAN CILEXETIL
  10. MELATONINE [Concomitant]
     Active Substance: MELATONIN
  11. BISOPROLOL (FUMARATE ACIDE DE) [Concomitant]
     Active Substance: BISOPROLOL FUMARATE

REACTIONS (2)
  - Anaemia [Recovered/Resolved]
  - Haematoma muscle [Recovering/Resolving]

NARRATIVE: CASE EVENT DATE: 20190623
